FAERS Safety Report 18007780 (Version 2)
Quarter: 2020Q3

REPORT INFORMATION
  Report Type: Spontaneous
  Country: US (occurrence: US)
  Receive Date: 20200710
  Receipt Date: 20200731
  Transmission Date: 20201103
  Serious: Yes (Hospitalization)
  Sender: FDA-Public Use
  Company Number: US-B.I. PHARMACEUTICALS,INC./RIDGEFIELD-2020-BI-034929

PATIENT
  Age: 75 Year
  Sex: Female
  Weight: 70.5 kg

DRUGS (18)
  1. DILANTIN [Concomitant]
     Active Substance: PHENYTOIN
     Indication: PRODUCT USED FOR UNKNOWN INDICATION
     Dosage: DILANTIN EXTENDED (PHENYTOIN SODIUM EXTENDED) CAPSULE 100 MG; TAKE 1 CAPSULE BY MOUTH 3 TIMES A DAY;
     Route: 048
     Dates: start: 20140305
  2. HYDRALAZINE [Concomitant]
     Active Substance: HYDRALAZINE HYDROCHLORIDE
     Indication: PRODUCT USED FOR UNKNOWN INDICATION
     Dosage: HYDRALAZINE 25 MG TABLET
     Route: 048
     Dates: start: 20180913
  3. AMLODIPINE [Concomitant]
     Active Substance: AMLODIPINE BESYLATE
     Indication: PRODUCT USED FOR UNKNOWN INDICATION
     Dosage: TAKE 10 MG BY MOUTH NIGHTLY AT BEDTIME
     Route: 048
  4. FLUTICASONE PROPIONATE. [Concomitant]
     Active Substance: FLUTICASONE PROPIONATE
     Indication: PRODUCT USED FOR UNKNOWN INDICATION
     Dosage: 50 MCG/ACT NASAL SPRAY, SPRAYS BY EACH NOSTRIL ROUTE DAILY AS NEEDED. AS DIRECTED
     Route: 045
     Dates: start: 20171019
  5. CLONIDINE. [Concomitant]
     Active Substance: CLONIDINE
     Indication: PRODUCT USED FOR UNKNOWN INDICATION
     Dosage: CLONIDINE 0.2 MG TABLET
     Route: 048
     Dates: start: 20180810, end: 20190513
  6. MIRABEGRON [Concomitant]
     Active Substance: MIRABEGRON
     Indication: PRODUCT USED FOR UNKNOWN INDICATION
     Dosage: MIRABEGRON ER 25 MG 24 HR TABLET
     Route: 048
  7. OMEPRAZOLE. [Concomitant]
     Active Substance: OMEPRAZOLE
     Indication: PRODUCT USED FOR UNKNOWN INDICATION
     Dosage: OMEPRAZOLE 40 MG CAPSULE
     Route: 048
  8. PRADAXA [Suspect]
     Active Substance: DABIGATRAN ETEXILATE MESYLATE
     Indication: ATRIAL FIBRILLATION
     Route: 048
     Dates: start: 201407
  9. PRADAXA [Suspect]
     Active Substance: DABIGATRAN ETEXILATE MESYLATE
     Dosage: TAKE 1 TABLET BY MOUTH 2 (TWO) TIMES DAILY
     Route: 048
     Dates: start: 20151202, end: 20190513
  10. CARVEDILOL. [Concomitant]
     Active Substance: CARVEDILOL
     Indication: PRODUCT USED FOR UNKNOWN INDICATION
     Dosage: TAKE 1 TABLET BY MOUTH EVERY 12 (TWELVE) HOURS
     Route: 048
     Dates: start: 20150115, end: 20190513
  11. LEVOTHYROXINE. [Concomitant]
     Active Substance: LEVOTHYROXINE
     Indication: PRODUCT USED FOR UNKNOWN INDICATION
     Dosage: TAKE 1 TABLET BY MOUTH DAILY
     Route: 048
     Dates: start: 20121011
  12. POTASSIUM CHLORIDE. [Concomitant]
     Active Substance: POTASSIUM CHLORIDE
     Indication: PRODUCT USED FOR UNKNOWN INDICATION
     Dosage: TAKE 2 TABLETS (20 MEQ TOTAL) BY MOUTH 2 (TWO) TIMES DAILY
     Route: 048
     Dates: start: 20171204
  13. DIGOXIN. [Concomitant]
     Active Substance: DIGOXIN
     Indication: PRODUCT USED FOR UNKNOWN INDICATION
     Dosage: DIGOXIN 0.125 MG TABLET
     Route: 048
     Dates: start: 20180821
  14. SPIRONOLACTONE. [Concomitant]
     Active Substance: SPIRONOLACTONE
     Indication: PRODUCT USED FOR UNKNOWN INDICATION
     Dosage: SPIRONOLACTONE 50 MG TABLET
     Route: 048
     Dates: start: 20180711, end: 20190513
  15. GABAPENTIN. [Concomitant]
     Active Substance: GABAPENTIN
     Indication: PRODUCT USED FOR UNKNOWN INDICATION
     Dosage: TAKE 300 MG BY MOUTH 4 (FOUR) TIMES DAILY.
     Route: 048
     Dates: start: 20110608, end: 20190513
  16. HYSINGLA ER [Concomitant]
     Active Substance: HYDROCODONE BITARTRATE
     Indication: PRODUCT USED FOR UNKNOWN INDICATION
     Dosage: HYSINGLA ER 20 MG TABLET EXTENDED RELEASE 24 HOUR ABUSE?DETERRENT
     Route: 048
     Dates: start: 20180904, end: 20190513
  17. LOSARTAN. [Concomitant]
     Active Substance: LOSARTAN
     Indication: PRODUCT USED FOR UNKNOWN INDICATION
     Route: 048
     Dates: start: 20180824
  18. SUCRALFATE. [Concomitant]
     Active Substance: SUCRALFATE
     Indication: PRODUCT USED FOR UNKNOWN INDICATION
     Dosage: SUCRALFATE 1 G TABLET
     Route: 048

REACTIONS (2)
  - Subarachnoid haemorrhage [Not Recovered/Not Resolved]
  - Subdural haematoma [Not Recovered/Not Resolved]

NARRATIVE: CASE EVENT DATE: 20190501
